FAERS Safety Report 11363101 (Version 1)
Quarter: 2015Q3

REPORT INFORMATION
  Report Type: Spontaneous
  Country: DE (occurrence: None)
  Receive Date: 20150807
  Receipt Date: 20150807
  Transmission Date: 20151125
  Serious: Yes (Life-Threatening)
  Sender: FDA-Public Use
  Company Number: DE-AGG-07-2015-0605

PATIENT
  Age: 41 Year
  Sex: Male
  Weight: 67 kg

DRUGS (5)
  1. STATIN [Concomitant]
     Active Substance: UNSPECIFIED INGREDIENT
  2. ACETYLSALICYLIC ACID [Concomitant]
     Active Substance: ASPIRIN
  3. BETA BLOCKER [Concomitant]
     Active Substance: UNSPECIFIED INGREDIENT
  4. TIROFIBAN HCL [Suspect]
     Active Substance: TIROFIBAN HYDROCHLORIDE
     Indication: ANTIPLATELET THERAPY
     Dosage: 1 X 7.5 ML EVERY 1 DAY(S)
     Route: 042
     Dates: start: 20070804, end: 20070804
  5. II BLOCKER [Concomitant]

REACTIONS (1)
  - Acute coronary syndrome [None]

NARRATIVE: CASE EVENT DATE: 20070914
